FAERS Safety Report 23175279 (Version 1)
Quarter: 2023Q4

REPORT INFORMATION
  Report Type: Spontaneous
  Country: CN (occurrence: CN)
  Receive Date: 20231113
  Receipt Date: 20231113
  Transmission Date: 20240110
  Serious: Yes (Hospitalization, Other)
  Sender: FDA-Public Use
  Company Number: None

PATIENT
  Age: 18 Year
  Sex: Male
  Weight: 70 kg

DRUGS (8)
  1. CYCLOPHOSPHAMIDE [Suspect]
     Active Substance: CYCLOPHOSPHAMIDE
     Indication: Acute lymphocytic leukaemia
     Dosage: 700 MG, QD, DILUTED WITH 100ML SODIUM CHLORIDE (NS)
     Route: 041
     Dates: start: 20230927, end: 20230929
  2. SODIUM CHLORIDE [Suspect]
     Active Substance: SODIUM CHLORIDE
     Indication: Medication dilution
     Dosage: 100ML, Q5D, USED TO DILUTE 2MG VINCRISTINE SULFATE
     Route: 041
     Dates: start: 20230926, end: 20231001
  3. SODIUM CHLORIDE [Suspect]
     Active Substance: SODIUM CHLORIDE
     Dosage: 100ML, QD, USED TO DILUTE 0.5G METHOTREXATE
     Route: 041
     Dates: start: 20230926, end: 20230926
  4. SODIUM CHLORIDE [Suspect]
     Active Substance: SODIUM CHLORIDE
     Dosage: 100ML, QD, USED TO DILUTE 700MG CYCLOPHOSPHAMIDE
     Route: 041
     Dates: start: 20230927, end: 20230929
  5. SODIUM CHLORIDE [Suspect]
     Active Substance: SODIUM CHLORIDE
     Dosage: 100ML, QD, USED TO DILUTE 6G CYTARABINE
     Route: 041
     Dates: start: 20230930, end: 20230930
  6. VINCRISTINE SULFATE [Suspect]
     Active Substance: VINCRISTINE SULFATE
     Indication: Acute lymphocytic leukaemia
     Dosage: 2 MG, Q5D, DILUTED WITH 100ML SODIUM CHLORIDE (NS)
     Route: 041
     Dates: start: 20230926, end: 20231001
  7. CYTARABINE [Suspect]
     Active Substance: CYTARABINE
     Indication: Acute lymphocytic leukaemia
     Dosage: 6 G, QD, DILUTED WITH 100ML SODIUM CHLORIDE (NS)
     Route: 041
     Dates: start: 20230930, end: 20230930
  8. METHOTREXATE [Suspect]
     Active Substance: METHOTREXATE
     Indication: Acute lymphocytic leukaemia
     Dosage: 0.5G, QD, DILUTED WITH 100ML SODIUM CHLORIDE (NS)
     Route: 041
     Dates: start: 20230926, end: 20230926

REACTIONS (1)
  - Myelosuppression [Recovered/Resolved]

NARRATIVE: CASE EVENT DATE: 20231005
